FAERS Safety Report 10567938 (Version 1)
Quarter: 2014Q4

REPORT INFORMATION
  Report Type: Spontaneous
  Country: US (occurrence: None)
  Receive Date: 20141104
  Receipt Date: 20141104
  Transmission Date: 20150529
  Serious: Yes (Other)
  Sender: FDA-Public Use
  Company Number: 201410149

PATIENT
  Age: 57 Year
  Sex: Male
  Weight: 105.24 kg

DRUGS (3)
  1. PROTONIX [Concomitant]
     Active Substance: PANTOPRAZOLE SODIUM
  2. LOSARTAN (LOSARTAN) [Concomitant]
     Active Substance: LOSARTAN
  3. TESTOPEL [Suspect]
     Active Substance: TESTOSTERONE
     Indication: BLOOD TESTOSTERONE DECREASED
     Route: 058
     Dates: start: 2013, end: 20140909

REACTIONS (3)
  - Implant site pain [None]
  - Implant site infection [None]
  - Implant site bruising [None]
